FAERS Safety Report 7072593-X (Version None)
Quarter: 2010Q4

REPORT INFORMATION
  Report Type: 
  Country: None (occurrence: None)
  Receive Date: 20101029
  Receipt Date: 20100304
  Transmission Date: 20110411
  Serious: No
  Sender: FDA-Public Use
  Company Number: A0844940A

PATIENT
  Age: 38 Year
  Sex: Female

DRUGS (7)
  1. ADVAIR DISKUS 100/50 [Suspect]
     Indication: ASTHMA
     Dosage: 1PUFF TWICE PER DAY
     Route: 055
     Dates: start: 20100215
  2. METHYLPREDNISOLONE [Concomitant]
  3. LAMICTAL [Concomitant]
  4. TOPAMAX [Concomitant]
  5. SEROQUEL [Concomitant]
  6. PRILOSEC [Concomitant]
  7. ALBUTEROL [Concomitant]

REACTIONS (1)
  - ABDOMINAL PAIN UPPER [None]
